FAERS Safety Report 5689119-5 (Version None)
Quarter: 2008Q1

REPORT INFORMATION
  Report Type: 
  Country: None (occurrence: None)
  Receive Date: 20080331
  Receipt Date: 19840120
  Transmission Date: 20080703
  Serious: Yes (Death)
  Sender: FDA-Public Use
  Company Number: JP-ROCHE-830103832001

PATIENT
  Age: 58 Year
  Sex: Male

DRUGS (9)
  1. TICLOPIDINE HCL [Suspect]
     Indication: DRUG USE FOR UNKNOWN INDICATION
     Route: 065
     Dates: start: 19830831, end: 19831221
  2. MADOPAR [Suspect]
     Indication: PARKINSONISM
     Route: 048
     Dates: start: 19830831, end: 19831221
  3. DIAZEPAM [Suspect]
     Indication: DRUG USE FOR UNKNOWN INDICATION
     Route: 048
     Dates: start: 19830831, end: 19831221
  4. CO-TRIMOXAZOLE [Suspect]
     Indication: DRUG USE FOR UNKNOWN INDICATION
     Route: 048
     Dates: start: 19830909, end: 19830917
  5. PROPRANOLOL HCL [Concomitant]
     Indication: TREMOR
     Route: 065
     Dates: start: 19830831, end: 19831221
  6. SENNOSIDE A+B [Concomitant]
     Route: 065
     Dates: start: 19830831, end: 19831221
  7. ALOSENN [Concomitant]
     Route: 065
     Dates: start: 19830831, end: 19831221
  8. PIPEMIDIC ACID [Concomitant]
     Route: 065
     Dates: start: 19830803, end: 19830908
  9. ARTANE [Concomitant]
     Route: 048
     Dates: start: 19830831, end: 19831130

REACTIONS (3)
  - DEATH [None]
  - ECZEMA [None]
  - PYREXIA [None]
